FAERS Safety Report 6085541-6 (Version None)
Quarter: 2009Q1

REPORT INFORMATION
  Report Type: 
  Country: None (occurrence: None)
  Receive Date: 20090217
  Receipt Date: 20090217
  Transmission Date: 20090719
  Serious: Yes (Other)
  Sender: FDA-Public Use
  Company Number: None

PATIENT
  Age: 3 Year
  Weight: 23.1334 kg

DRUGS (1)
  1. MIRALAX [Suspect]

REACTIONS (4)
  - ABNORMAL BEHAVIOUR [None]
  - EXCESSIVE EYE BLINKING [None]
  - IRRITABILITY [None]
  - MALAISE [None]
